FAERS Safety Report 17435709 (Version 1)
Quarter: 2020Q1

REPORT INFORMATION
  Report Type: Spontaneous
  Country: BE (occurrence: BE)
  Receive Date: 20200219
  Receipt Date: 20200219
  Transmission Date: 20200409
  Serious: Yes (Disabling)
  Sender: FDA-Public Use
  Company Number: BE-TEVA-2020-BE-1188070

PATIENT
  Age: 81 Year
  Sex: Male
  Weight: 90 kg

DRUGS (8)
  1. OLMESARTAN EG 10 MG FILMOMHULDE TABLETTEN [Suspect]
     Active Substance: OLMESARTAN
     Indication: BLOOD PRESSURE MEASUREMENT
     Dosage: 1 DOSAGE FORMS 1 DAYS
     Route: 048
     Dates: start: 20191215, end: 20191227
  2. STEOVIT FORTE 1000 MG/800 U.I. [Concomitant]
  3. CORDARONE [Concomitant]
     Active Substance: AMIODARONE HYDROCHLORIDE
  4. RAMIPRIL SANDOZ 5 MG TABLET [Suspect]
     Active Substance: RAMIPRIL
     Indication: BLOOD PRESSURE MEASUREMENT
     Dosage: 1 DOSAGE FORMS DAILY; TAKEN IN THE MORNING
     Route: 048
     Dates: start: 20180629, end: 20191215
  5. SYMBICORT 160MICROGRAM/4.5MICROGRAM [Concomitant]
  6. ELIQUIS 2,5 MG [Concomitant]
  7. AMLODIPINE 10 MG [Concomitant]
     Active Substance: AMLODIPINE BESYLATE
  8. DAFALGAN FORTE [Concomitant]

REACTIONS (3)
  - Pruritus [Recovered/Resolved]
  - Feeling of despair [Recovered/Resolved]
  - Insomnia [Recovered/Resolved]

NARRATIVE: CASE EVENT DATE: 20190301
